FAERS Safety Report 5633225-8 (Version None)
Quarter: 2008Q1

REPORT INFORMATION
  Report Type: 
  Country: None (occurrence: None)
  Receive Date: 20080215
  Receipt Date: 20080207
  Transmission Date: 20080703
  Serious: Yes (Life-Threatening, Other)
  Sender: FDA-Public Use
  Company Number: 2008AP000399

PATIENT
  Age: 38 Year
  Sex: Female

DRUGS (6)
  1. AMLODIPINE BESYLATE [Suspect]
     Dosage: 10 MG; PO, 5 MG; PO
     Route: 048
     Dates: start: 20050609, end: 20050811
  2. AMLODIPINE BESYLATE [Suspect]
     Dosage: 10 MG; PO, 5 MG; PO
     Route: 048
     Dates: start: 20050609, end: 20080117
  3. AMLODIPINE BESYLATE [Suspect]
     Dosage: 10 MG; PO, 5 MG; PO
     Route: 048
     Dates: start: 20050811, end: 20080117
  4. BENDROFLUMETHIAZIDE (BENDROFLUMETHIAZIDE) [Concomitant]
  5. CODEINE PHOSPHATE (CODEINE PHOSPHATE) [Concomitant]
  6. VALSARTAN [Concomitant]

REACTIONS (2)
  - ELECTROCARDIOGRAM QT PROLONGED [None]
  - VENTRICULAR EXTRASYSTOLES [None]
